FAERS Safety Report 22276464 (Version 2)
Quarter: 2023Q2

REPORT INFORMATION
  Report Type: Spontaneous
  Country: BR (occurrence: BR)
  Receive Date: 20230503
  Receipt Date: 20230509
  Transmission Date: 20230722
  Serious: Yes (Hospitalization)
  Sender: FDA-Public Use
  Company Number: BR-VALIDUS PHARMACEUTICALS LLC-BR-VDP-2023-016070

PATIENT

DRUGS (4)
  1. ROCALTROL [Suspect]
     Active Substance: CALCITRIOL
     Indication: Post procedural hypoparathyroidism
     Dosage: 3 DOSAGE FORM, QD (1 DOSAGE FORM, 3 IN 1 D)
     Route: 048
     Dates: start: 2013
  2. ROCALTROL [Suspect]
     Active Substance: CALCITRIOL
     Dosage: 4 DOSAGE FORM, QD (1 DOSAGE FORM, 4 IN 1 D)
     Route: 048
  3. CALCIUM CARBONATE [Concomitant]
     Active Substance: CALCIUM CARBONATE
     Indication: Mineral supplementation
     Dosage: 3 TABLETS
     Route: 065
     Dates: start: 2013
  4. SYNTHROID [Concomitant]
     Active Substance: LEVOTHYROXINE SODIUM
     Indication: Hypothyroidism
     Dosage: 1 DF, QD  (1 IN 1 DAY)
     Route: 065
     Dates: start: 2013

REACTIONS (2)
  - Diarrhoea [Unknown]
  - Drug ineffective [Unknown]

NARRATIVE: CASE EVENT DATE: 20220701
